FAERS Safety Report 7456066-8 (Version None)
Quarter: 2011Q2

REPORT INFORMATION
  Report Type: 
  Country: None (occurrence: None)
  Receive Date: 20110503
  Receipt Date: 20110428
  Transmission Date: 20111010
  Serious: No
  Sender: FDA-Public Use
  Company Number: US-PFIZER INC-2011092493

PATIENT
  Sex: Male

DRUGS (1)
  1. GENOTROPIN [Suspect]
     Indication: GROWTH HORMONE DEFICIENCY
     Dosage: 1.6 MG, 1X/DAY
     Route: 058
     Dates: start: 20110201

REACTIONS (2)
  - INJECTION SITE HAEMATOMA [None]
  - INCORRECT ROUTE OF DRUG ADMINISTRATION [None]
